FAERS Safety Report 25367350 (Version 1)
Quarter: 2025Q2

REPORT INFORMATION
  Report Type: Spontaneous
  Country: CN (occurrence: CN)
  Receive Date: 20250528
  Receipt Date: 20250528
  Transmission Date: 20250716
  Serious: Yes (Other)
  Sender: ALEXION PHARMACEUTICALS
  Company Number: CN-ASTRAZENECA-202505CHN019662CN

PATIENT
  Age: 86 Year
  Weight: 47.5 kg

DRUGS (1)
  1. DAPAGLIFLOZIN [Suspect]
     Active Substance: DAPAGLIFLOZIN
     Indication: Diabetes mellitus

REACTIONS (4)
  - Hyperpyrexia [Recovering/Resolving]
  - Urinary tract infection [Unknown]
  - Chills [Unknown]
  - Dysuria [Unknown]
